FAERS Safety Report 9720834 (Version 1)
Quarter: 2013Q4

REPORT INFORMATION
  Report Type: Spontaneous
  Country: MX (occurrence: MX)
  Receive Date: 20131129
  Receipt Date: 20131129
  Transmission Date: 20140711
  Serious: Yes (Death, Other)
  Sender: FDA-Public Use
  Company Number: MX-ROCHE-1310400

PATIENT
  Age: 48 Year
  Sex: 0

DRUGS (6)
  1. AVASTIN [Suspect]
     Indication: BREAST CANCER METASTATIC
     Route: 065
     Dates: start: 20090724, end: 20091130
  2. XELODA [Suspect]
     Indication: BREAST CANCER METASTATIC
     Route: 065
  3. CARBOPLATINO [Concomitant]
     Indication: BREAST CANCER METASTATIC
     Route: 065
     Dates: start: 20090725, end: 20091130
  4. PACLITAXEL [Concomitant]
  5. DOCETAXEL [Concomitant]
  6. TAMOXIFEN [Concomitant]

REACTIONS (3)
  - Death [Fatal]
  - Toxicity to various agents [Unknown]
  - Disease progression [Unknown]
